FAERS Safety Report 10251318 (Version 1)
Quarter: 2014Q2

REPORT INFORMATION
  Report Type: Spontaneous
  Country: PT (occurrence: PT)
  Receive Date: 20140621
  Receipt Date: 20140621
  Transmission Date: 20141212
  Serious: Yes (Hospitalization, Other)
  Sender: FDA-Public Use
  Company Number: PT-009507513-1406PRT010081

PATIENT
  Age: 54 Year
  Sex: Male

DRUGS (1)
  1. CANDESARTAN CILEXETIL (+) HYDROCHLOROTHIAZIDE [Suspect]
     Indication: HYPERTENSION
     Dosage: UNK

REACTIONS (11)
  - Anaphylactic shock [Recovering/Resolving]
  - Dyspnoea [Unknown]
  - Vomiting [Unknown]
  - Diarrhoea [Unknown]
  - Oropharyngeal discomfort [Unknown]
  - Dysphonia [Unknown]
  - Hypotension [None]
  - Hypoxia [None]
  - Laryngeal oedema [None]
  - Pharyngeal oedema [None]
  - Breath sounds abnormal [None]
